FAERS Safety Report 4779086-0 (Version None)
Quarter: 2005Q3

REPORT INFORMATION
  Report Type: 
  Country: None (occurrence: None)
  Receive Date: 20050923
  Receipt Date: 20050912
  Transmission Date: 20060218
  Serious: Yes (Hospitalization)
  Sender: FDA-Public Use
  Company Number: 2005-132384-NL

PATIENT
  Age: 49 Year
  Sex: Female

DRUGS (1)
  1. DESOGESTREL/ETHINYL ESTRADIOL [Suspect]
     Dosage: DF; ORAL
     Route: 048
     Dates: end: 20050427

REACTIONS (9)
  - DYSPNOEA [None]
  - GASTRITIS [None]
  - HYPOALBUMINAEMIA [None]
  - ILIAC VEIN THROMBOSIS [None]
  - IRON DEFICIENCY ANAEMIA [None]
  - MALNUTRITION [None]
  - PAIN IN EXTREMITY [None]
  - PULMONARY EMBOLISM [None]
  - VENA CAVA THROMBOSIS [None]
